FAERS Safety Report 5509616-2 (Version None)
Quarter: 2007Q4

REPORT INFORMATION
  Report Type: 
  Country: None (occurrence: None)
  Receive Date: 20071107
  Receipt Date: 20071107
  Transmission Date: 20080405
  Serious: Yes (Other)
  Sender: FDA-Public Use
  Company Number: None

PATIENT
  Sex: Female
  Weight: 50.8029 kg

DRUGS (1)
  1. HALL'S MENTHO-LYPTUS [Suspect]
     Indication: COUGH
     Dosage: 1 LOZENGE
     Dates: start: 20071008

REACTIONS (6)
  - INFLAMMATION [None]
  - ORAL PAIN [None]
  - PAIN [None]
  - PHARYNGOLARYNGEAL PAIN [None]
  - SWELLING [None]
  - TOOTHACHE [None]
